FAERS Safety Report 8129410-6 (Version None)
Quarter: 2011Q4

REPORT INFORMATION
  Report Type: 
  Country: None (occurrence: None)
  Receive Date: 20111227
  Receipt Date: 20110829
  Transmission Date: 20120403
  Serious: No
  Sender: FDA-Public Use
  Company Number: PHEH2011US03186

PATIENT

DRUGS (1)
  1. GILENYA [Suspect]

REACTIONS (8)
  - TENDERNESS [None]
  - PRURITUS [None]
  - MUSCLE TWITCHING [None]
  - MUSCULOSKELETAL PAIN [None]
  - HYPOAESTHESIA [None]
  - MUSCLE SPASMS [None]
  - FATIGUE [None]
  - DIZZINESS [None]
